FAERS Safety Report 13047579 (Version 1)
Quarter: 2016Q4

REPORT INFORMATION
  Report Type: Spontaneous
  Country: CA (occurrence: CA)
  Receive Date: 20161220
  Receipt Date: 20161220
  Transmission Date: 20170207
  Serious: Yes (Other)
  Sender: FDA-Public Use
  Company Number: CA-CELLTRION HEALTHCARE HUNGARY KFT-2016CA010971

PATIENT

DRUGS (6)
  1. INFLECTRA [Suspect]
     Active Substance: INFLIXIMAB-DYYB
     Dosage: 500 MG EVERY 2, 6 WEEKS, THEN EVERY 8 WEEKS FOR 11 MONTHS
     Route: 042
     Dates: start: 2016
  2. INFLECTRA [Suspect]
     Active Substance: INFLIXIMAB-DYYB
     Dosage: 500 MG EVERY 2, 6 WEEKS, THEN EVERY 8 WEEKS FOR 11 MONTHS
     Route: 042
     Dates: start: 20160822, end: 20160822
  3. NAPROXEN. [Concomitant]
     Active Substance: NAPROXEN
     Dosage: 500 MG, DAILY
     Route: 048
  4. TRAMCET [Concomitant]
     Active Substance: ACETAMINOPHEN\TRAMADOL
     Dosage: 37.5MG/325MG, 3X/DAY
     Route: 048
  5. INFLECTRA [Suspect]
     Active Substance: INFLIXIMAB-DYYB
     Indication: ANKYLOSING SPONDYLITIS
     Dosage: 500 MG EVERY 2, 6 WEEKS, THEN EVERY 8 WEEKS FOR 11 MONTHS
     Route: 042
     Dates: start: 20160630, end: 20160630
  6. INFLECTRA [Suspect]
     Active Substance: INFLIXIMAB-DYYB
     Dosage: 500 MG EVERY 2, 6 WEEKS, THEN EVERY 8 WEEKS FOR 11 MONTHS
     Route: 042

REACTIONS (4)
  - Fatigue [Not Recovered/Not Resolved]
  - Lower respiratory tract infection [Unknown]
  - Body temperature increased [Recovered/Resolved]
  - Pain [Not Recovered/Not Resolved]

NARRATIVE: CASE EVENT DATE: 201607
